FAERS Safety Report 7388155-0 (Version None)
Quarter: 2011Q2

REPORT INFORMATION
  Report Type: 
  Country: None (occurrence: None)
  Receive Date: 20110401
  Receipt Date: 20101015
  Transmission Date: 20111010
  Serious: Yes (Hospitalization)
  Sender: FDA-Public Use
  Company Number: US-BAYER-200938522NA

PATIENT
  Sex: Female
  Weight: 83.9 kg

DRUGS (10)
  1. FASTIN [Concomitant]
     Dosage: UNK
     Dates: start: 20070522, end: 20070827
  2. YASMIN [Suspect]
     Indication: CONTRACEPTION
     Dosage: UNK
     Dates: start: 20051101, end: 20080701
  3. XANAX [Concomitant]
     Indication: ANXIETY
     Dosage: 0.5 MG, BID
     Dates: start: 20051101
  4. NEXIUM [Concomitant]
     Indication: GASTROOESOPHAGEAL REFLUX DISEASE
     Dosage: UNK
     Dates: start: 20071001
  5. VITAMIN E [Concomitant]
     Dosage: UNK UNK, QD
  6. GLUCOPHAGE [Concomitant]
     Dosage: UNK
     Dates: start: 20070901
  7. ZOLOFT [Concomitant]
     Dosage: 100 UNK, UNK
  8. BENEFIBER [Concomitant]
     Dosage: UNK
     Dates: start: 20070827
  9. VYTORIN [Concomitant]
  10. CIPRO [Concomitant]
     Dosage: 500 MG, BID
     Dates: start: 20070827

REACTIONS (3)
  - PAIN [None]
  - CHOLELITHIASIS [None]
  - CHOLECYSTITIS CHRONIC [None]
